FAERS Safety Report 8260930-X (Version None)
Quarter: 2012Q2

REPORT INFORMATION
  Report Type: 
  Country: None (occurrence: None)
  Receive Date: 20120402
  Receipt Date: 20120323
  Transmission Date: 20120825
  Serious: Yes (Other)
  Sender: FDA-Public Use
  Company Number: ABR_00413_2012

PATIENT
  Sex: Male

DRUGS (2)
  1. ANATOXINUM TETANICUM (NOT SPECIFIED) [Suspect]
     Dosage: (DF)
  2. ERYTHROMYCIN [Suspect]
     Indication: ARTHROPOD BITE
     Dosage: SEE IMAGE:
     Dates: start: 20120322, end: 20120323

REACTIONS (7)
  - MALAISE [None]
  - ACCIDENTAL OVERDOSE [None]
  - DIZZINESS [None]
  - NAUSEA [None]
  - ABDOMINAL PAIN UPPER [None]
  - ASTHENIA [None]
  - INCORRECT DOSE ADMINISTERED [None]
